FAERS Safety Report 4341081-3 (Version None)
Quarter: 2004Q2

REPORT INFORMATION
  Report Type: 
  Country: None (occurrence: None)
  Receive Date: 20040419
  Receipt Date: 20040312
  Transmission Date: 20050107
  Serious: Yes (Other)
  Sender: FDA-Public Use
  Company Number: JP-ROCHE-362444

PATIENT
  Age: 32 Year
  Sex: Female

DRUGS (2)
  1. TAMIFLU [Suspect]
     Route: 048
     Dates: start: 20040308, end: 20040312
  2. BUFFERIN [Concomitant]
     Indication: ANTIPYRESIS
     Route: 048
     Dates: start: 20040308

REACTIONS (7)
  - BASOPHIL COUNT INCREASED [None]
  - EOSINOPHIL COUNT DECREASED [None]
  - LYMPH NODE PALPABLE [None]
  - LYMPHOCYTE COUNT INCREASED [None]
  - MONOCYTE COUNT INCREASED [None]
  - NEUTROPHIL COUNT DECREASED [None]
  - WHITE BLOOD CELL COUNT DECREASED [None]
